APPROVED DRUG PRODUCT: CEFTRIAXONE
Active Ingredient: CEFTRIAXONE SODIUM
Strength: EQ 500MG BASE/VIAL
Dosage Form/Route: INJECTABLE;INJECTION
Application: A065329 | Product #001 | TE Code: AP
Applicant: ACS DOBFAR SPA
Approved: Jul 24, 2008 | RLD: No | RS: No | Type: RX